FAERS Safety Report 24423350 (Version 1)
Quarter: 2024Q4

REPORT INFORMATION
  Report Type: Spontaneous
  Country: US (occurrence: US)
  Receive Date: 20241010
  Receipt Date: 20241010
  Transmission Date: 20250115
  Serious: No
  Sender: Haleon PLC
  Company Number: US-HALEON-2200377

PATIENT
  Sex: Female

DRUGS (1)
  1. SENSODYNE TRUE WHITE [Suspect]
     Active Substance: POTASSIUM NITRATE\SODIUM FLUORIDE
     Indication: Product used for unknown indication

REACTIONS (1)
  - Wrong technique in product usage process [Unknown]
